FAERS Safety Report 8485798 (Version 6)
Quarter: 2013Q3

REPORT INFORMATION
  Report Type: Report from Study
  Country: US (occurrence: US)
  Receive Date: 20120330
  Receipt Date: 20130912
  Transmission Date: 20140515
  Serious: Yes (Death, Hospitalization, Other)
  Sender: FDA-Public Use
  Company Number: US-ELI_LILLY_AND_COMPANY-US201111004861

PATIENT
  Age: 73 Year
  Sex: Female
  Weight: 60.32 kg

DRUGS (16)
  1. TERIPARATIDE [Suspect]
     Indication: OSTEOPOROSIS
     Dosage: 20 UG, QD
     Route: 058
     Dates: start: 20111017
  2. TERIPARATIDE [Suspect]
     Dosage: 20 UG, QD
     Route: 058
  3. TERIPARATIDE [Suspect]
     Dosage: 20 UG, QD
     Route: 058
  4. TERIPARATIDE [Suspect]
     Dosage: 20 UG, QD
     Route: 058
  5. TERIPARATIDE [Suspect]
     Dosage: 20 UG, QD
     Route: 058
  6. PRILOSEC [Concomitant]
     Indication: GASTROOESOPHAGEAL REFLUX DISEASE
  7. NEXIUM [Concomitant]
     Indication: GASTROOESOPHAGEAL REFLUX DISEASE
     Dosage: 40 MG, EACH EVENING
  8. COLCHICINE [Concomitant]
     Dosage: 0.6 MG, 3/W
  9. IBUPROFEN [Concomitant]
     Dosage: 200 MG, PRN
  10. CYMBALTA [Concomitant]
     Dosage: 60 MG, QD
  11. CLONAZEPAM [Concomitant]
     Dosage: 1 MG, EACH EVENING
  12. METOPROLOL [Concomitant]
     Dosage: 50 MG, QD
  13. IMURAN [Concomitant]
     Dosage: 75 MG, QD
  14. IMIPRAMINE [Concomitant]
     Dosage: 2 DF, EACH EVENING
  15. SYNTHROID [Concomitant]
     Dosage: 1.25 MG, QD
  16. MTV [Concomitant]

REACTIONS (24)
  - Death [Fatal]
  - Myocardial infarction [Unknown]
  - Glaucoma [Unknown]
  - Balance disorder [Unknown]
  - Feeling abnormal [Unknown]
  - Fatigue [Not Recovered/Not Resolved]
  - Somnolence [Unknown]
  - Myalgia [Unknown]
  - Disease progression [Unknown]
  - Asthenia [Recovered/Resolved]
  - Pain [Recovering/Resolving]
  - Arthralgia [Unknown]
  - Dizziness [Unknown]
  - Expired drug administered [Unknown]
  - Abdominal rigidity [Unknown]
  - Neck pain [Not Recovered/Not Resolved]
  - Headache [Not Recovered/Not Resolved]
  - Sinus headache [Not Recovered/Not Resolved]
  - Oropharyngeal pain [Unknown]
  - Feeling abnormal [Unknown]
  - Fall [Unknown]
  - Musculoskeletal discomfort [Unknown]
  - Fatigue [Unknown]
  - Malaise [Unknown]
